FAERS Safety Report 8570495-0 (Version None)
Quarter: 2012Q3

REPORT INFORMATION
  Report Type: 
  Country: None (occurrence: None)
  Receive Date: 20120803
  Receipt Date: 20120724
  Transmission Date: 20120928
  Serious: No
  Sender: FDA-Public Use
  Company Number: US-ASTRAZENECA-2011SE59875

PATIENT
  Age: 35 Year
  Sex: Female
  Weight: 84.4 kg

DRUGS (8)
  1. SEROQUEL XR [Suspect]
     Indication: BIPOLAR DISORDER
     Route: 048
     Dates: start: 20090101
  2. CELEXA [Concomitant]
  3. SEROQUEL XR [Suspect]
     Dosage: HALF TABLET
     Route: 048
  4. LAMINDA [Concomitant]
  5. GENERIC AMBIENT [Concomitant]
  6. HUPERAZINE A [Concomitant]
  7. LAMICTAL [Concomitant]
  8. MUNICIN [Concomitant]
     Indication: ACNE
     Dosage: OD (DAILY)

REACTIONS (7)
  - WRONG TECHNIQUE IN DRUG USAGE PROCESS [None]
  - HEADACHE [None]
  - IRRITABILITY [None]
  - SOMATIC DELUSION [None]
  - MALAISE [None]
  - DRUG DOSE OMISSION [None]
  - ADVERSE EVENT [None]
